FAERS Safety Report 17107648 (Version 1)
Quarter: 2019Q4

REPORT INFORMATION
  Report Type: Spontaneous
  Country: DK (occurrence: DK)
  Receive Date: 20191204
  Receipt Date: 20191204
  Transmission Date: 20200122
  Serious: Yes (Life-Threatening, Hospitalization)
  Sender: FDA-Public Use
  Company Number: DK-B.I. PHARMACEUTICALS,INC./RIDGEFIELD-2019-12-117297

PATIENT
  Age: 61 Year
  Sex: Female

DRUGS (16)
  1. ATORVASTATIN [Concomitant]
     Active Substance: ATORVASTATIN
     Indication: HYPERCHOLESTEROLAEMIA
     Dosage: STYRKE: 40 MG
     Route: 048
     Dates: start: 20160107
  2. DALTEPARIN [Concomitant]
     Active Substance: DALTEPARIN
     Indication: THROMBOSIS PROPHYLAXIS
     Dosage: STYRKE: 5.000 ANTI-XA IE
     Route: 065
     Dates: start: 20190917
  3. LOSARTAN/HYDROCHLORTHIAZID ^BLUEFISH^ [Concomitant]
     Indication: HYPERTENSION
     Dosage: STYRKE: 1010+25MG
     Route: 048
     Dates: start: 20170404
  4. JANUVIA [Concomitant]
     Active Substance: SITAGLIPTIN PHOSPHATE
     Indication: TYPE 2 DIABETES MELLITUS
     Dosage: STYRKE: 100 MG
     Route: 048
     Dates: start: 20180222
  5. IBUPROFEN. [Concomitant]
     Active Substance: IBUPROFEN
     Indication: ARTHRITIS
     Dosage: STYRKE: 400 MG
     Route: 048
     Dates: start: 20171213
  6. OXYCODONE [Concomitant]
     Active Substance: OXYCODONE
     Indication: PAIN
     Dosage: STYRKE: 5 MG
     Route: 048
     Dates: start: 20190919
  7. CLOTRIMAZOLE. [Concomitant]
     Active Substance: CLOTRIMAZOLE
     Indication: VULVOVAGINAL MYCOTIC INFECTION
     Dosage: STRENGTH: 1% 1 APPLICATION 3 TIMES DAILY FOR 10 DAYS, VAGINAL CREAM
     Route: 067
     Dates: start: 20190925, end: 20191004
  8. CLOTRIMAZOLE. [Concomitant]
     Active Substance: CLOTRIMAZOLE
     Dosage: STYRKE: 500 MG
     Route: 067
     Dates: start: 20190925
  9. MILDIN [Concomitant]
     Indication: SEASONAL ALLERGY
     Dosage: STYRKE: 10 MG
     Route: 048
     Dates: start: 20171213
  10. PANTOPRAZOLE [Concomitant]
     Active Substance: PANTOPRAZOLE
     Indication: PROPHYLAXIS AGAINST GASTROINTESTINAL ULCER
     Dosage: STYRKE: 40 MG
     Route: 048
     Dates: start: 20190919
  11. JARDIANCE [Suspect]
     Active Substance: EMPAGLIFLOZIN
     Indication: TYPE 2 DIABETES MELLITUS
     Dosage: STYRKE: 25 MG
     Route: 048
     Dates: start: 20170404, end: 20191007
  12. METFORMIN [Concomitant]
     Active Substance: METFORMIN HYDROCHLORIDE
     Indication: TYPE 2 DIABETES MELLITUS
     Dosage: STYRKE: 850 MG
     Route: 048
     Dates: start: 20141113, end: 20191007
  13. MICONAZOLE. [Concomitant]
     Active Substance: MICONAZOLE
     Indication: FUNGAL INFECTION
     Dosage: STRENGTH: 20 MG/G 1 APPLICATION 2 TIMES DAILY FOR 9 DAYS
     Dates: start: 20190923
  14. PARACETAMOL [Concomitant]
     Active Substance: ACETAMINOPHEN
     Indication: PAIN
     Dosage: STYRKE: 500 MG
     Route: 048
     Dates: start: 20141010
  15. ACETYLSALICYLIC ACID [Concomitant]
     Active Substance: ASPIRIN
     Indication: THROMBOSIS PROPHYLAXIS
     Dosage: STYRKE: 100 MG
     Route: 048
     Dates: start: 20180105
  16. METOPROLOL SUCCINATE. [Concomitant]
     Active Substance: METOPROLOL SUCCINATE
     Indication: HYPERTENSION
     Dosage: STYRKE: 200 MG
     Route: 048
     Dates: start: 20180222

REACTIONS (4)
  - Ketoacidosis [Recovered/Resolved]
  - Malaise [Unknown]
  - Blood glucose increased [Unknown]
  - Candida sepsis [Unknown]

NARRATIVE: CASE EVENT DATE: 201910
